FAERS Safety Report 15290960 (Version 1)
Quarter: 2018Q3

REPORT INFORMATION
  Report Type: Spontaneous
  Country: DE (occurrence: DE)
  Receive Date: 20180817
  Receipt Date: 20180817
  Transmission Date: 20181010
  Serious: Yes (Other)
  Sender: FDA-Public Use
  Company Number: DE-TEVA-2018-DE-942673

PATIENT
  Age: 1 Day
  Sex: Male
  Weight: 3.08 kg

DRUGS (6)
  1. AMITRIPTYLIN [Concomitant]
     Active Substance: AMITRIPTYLINE
     Indication: RESTLESS LEGS SYNDROME
     Dosage: 25 MILLIGRAM DAILY;
     Route: 064
     Dates: start: 20170210, end: 20170327
  2. METHYLDOPA. [Concomitant]
     Active Substance: METHYLDOPA
     Indication: PRE-ECLAMPSIA
     Dosage: 75 MILLIGRAM DAILY; 750 [MG/D ]/ STARTED WITH 250MG/D, THEN DOSAGE INCREASE TO 3 X 250 MG/D
     Route: 064
     Dates: start: 20171009, end: 20171021
  3. PREDNISOLON [Suspect]
     Active Substance: PREDNISOLONE
     Indication: RHEUMATOID ARTHRITIS
     Dosage: 20 [MG/D ]/ GW 28+3: DOSAGE INCREASE FROM 7.5 MG/D TO 20 MG/D. LATER DECREASE AGAIN. AT DELIVERY 12
     Route: 064
     Dates: start: 20170210, end: 20171021
  4. MAMA A?Z [Concomitant]
     Indication: PROPHYLAXIS OF NEURAL TUBE DEFECT
     Dosage: .4 MILLIGRAM DAILY;
     Route: 064
     Dates: start: 20170210, end: 20171021
  5. CIMZIA [Concomitant]
     Active Substance: CERTOLIZUMAB PEGOL
     Indication: RHEUMATOID ARTHRITIS
     Route: 064
  6. CLOTRIMAZOLE. [Concomitant]
     Active Substance: CLOTRIMAZOLE
     Indication: VULVOVAGINAL MYCOTIC INFECTION
     Route: 064

REACTIONS (1)
  - Hypoglycaemia neonatal [Recovered/Resolved]

NARRATIVE: CASE EVENT DATE: 20171021
